FAERS Safety Report 15989136 (Version 1)
Quarter: 2019Q1

REPORT INFORMATION
  Report Type: Spontaneous
  Country: FR (occurrence: FR)
  Receive Date: 20190221
  Receipt Date: 20190221
  Transmission Date: 20190418
  Serious: Yes (Hospitalization)
  Sender: FDA-Public Use
  Company Number: FR-ACCORD-108378

PATIENT
  Age: 89 Year
  Sex: Male
  Weight: 70 kg

DRUGS (3)
  1. AUGMENTIN [Suspect]
     Active Substance: AMOXICILLIN\CLAVULANATE POTASSIUM
     Indication: WOUND
     Route: 048
     Dates: start: 20180610, end: 20180617
  2. ALLOPURINOL. [Suspect]
     Active Substance: ALLOPURINOL
     Indication: GOUT
     Route: 048
     Dates: start: 20180622, end: 20180703
  3. CLOXACILLIN [Concomitant]
     Active Substance: CLOXACILLIN
     Indication: WOUND
     Route: 048
     Dates: start: 20180604, end: 20180609

REACTIONS (2)
  - Jaundice [Recovered/Resolved]
  - Hepatitis cholestatic [Recovering/Resolving]

NARRATIVE: CASE EVENT DATE: 201807
